FAERS Safety Report 4387440-4 (Version None)
Quarter: 2004Q2

REPORT INFORMATION
  Report Type: 
  Country: None (occurrence: None)
  Receive Date: 20040625
  Receipt Date: 20040614
  Transmission Date: 20050107
  Serious: Yes (Hospitalization)
  Sender: FDA-Public Use
  Company Number: 2004039970

PATIENT
  Age: 75 Year
  Sex: Female

DRUGS (8)
  1. PHENYTOIN [Suspect]
     Indication: EPILEPSY
     Dosage: 300 MG (300 MG 1 IN 1 D) ORAL
     Route: 048
     Dates: start: 20030901, end: 20040602
  2. PROCHLORPERAZINE [Suspect]
     Indication: ILL-DEFINED DISORDER
     Dosage: 5 MG (5 MG 1 IN 1 D) ORAL
     Route: 048
     Dates: start: 20040529, end: 20040602
  3. VALPROIC ACID [Concomitant]
  4. ISOSORBIDE MONONITRATE [Concomitant]
  5. PRAVASTATIN [Concomitant]
  6. ACETYLSALICYLIC ACID SRT [Concomitant]
  7. LEVOTHYROXINE SODIUM [Concomitant]
  8. FUROSEMIDE [Concomitant]

REACTIONS (4)
  - ATAXIA [None]
  - DRUG LEVEL INCREASED [None]
  - DYSARTHRIA [None]
  - DYSKINESIA [None]
